FAERS Safety Report 23650274 (Version 1)
Quarter: 2024Q1

REPORT INFORMATION
  Report Type: Spontaneous
  Country: US (occurrence: None)
  Receive Date: 20240319
  Receipt Date: 20240319
  Transmission Date: 20240410
  Serious: No
  Sender: FDA-Public Use
  Company Number: US-ROCHE-3444722

PATIENT
  Sex: Female

DRUGS (2)
  1. VABYSMO [Suspect]
     Active Substance: FARICIMAB\FARICIMAB-SVOA
     Indication: Neovascular age-related macular degeneration
     Route: 050
     Dates: start: 20230927
  2. LOSARTAN [Concomitant]
     Active Substance: LOSARTAN
     Indication: Hypertension

REACTIONS (11)
  - Amnesia [Unknown]
  - Eye discharge [Unknown]
  - Eye irritation [Unknown]
  - Vision blurred [Unknown]
  - Vitreous floaters [Unknown]
  - Hyperhidrosis [Unknown]
  - Frequent bowel movements [Unknown]
  - Hypoaesthesia [Unknown]
  - Insomnia [Unknown]
  - Blood pressure increased [Unknown]
  - Arthralgia [Unknown]
